FAERS Safety Report 6128379-3 (Version None)
Quarter: 2009Q1

REPORT INFORMATION
  Report Type: 
  Country: None (occurrence: None)
  Receive Date: 20090323
  Receipt Date: 20090320
  Transmission Date: 20090719
  Serious: Yes (Other)
  Sender: FDA-Public Use
  Company Number: US-ABBOTT-09P-163-0558867-00

PATIENT
  Sex: Female
  Weight: 68.1 kg

DRUGS (8)
  1. SIMCOR [Suspect]
     Indication: BLOOD CHOLESTEROL INCREASED
     Dosage: 500/20MG QD QHS
     Route: 048
     Dates: start: 20081124
  2. SIMCOR [Suspect]
     Dosage: 500/20MG QD
     Route: 048
     Dates: start: 20090201
  3. ATENOLOL [Concomitant]
     Indication: ANGINA PECTORIS
     Route: 048
  4. NITROGLYCERIN [Concomitant]
     Indication: ANGINA PECTORIS
     Route: 060
  5. ASPIRIN [Concomitant]
     Indication: PROPHYLAXIS
     Route: 048
  6. CALCIUM SUPPLEMENT [Concomitant]
     Indication: MINERAL SUPPLEMENTATION
     Route: 048
  7. TYLENOL [Concomitant]
     Indication: ARTHRITIS
     Route: 048
  8. REQUIP [Concomitant]
     Indication: RESTLESS LEGS SYNDROME
     Route: 048

REACTIONS (2)
  - CAROTID ARTERY OCCLUSION [None]
  - VERTIGO [None]
